FAERS Safety Report 5767766-X (Version None)
Quarter: 2008Q2

REPORT INFORMATION
  Report Type: 
  Country: None (occurrence: None)
  Receive Date: 20080612
  Receipt Date: 20080602
  Transmission Date: 20081010
  Serious: Yes (Other)
  Sender: FDA-Public Use
  Company Number: DE-PFIZER INC-2008034821

PATIENT
  Sex: Female
  Weight: 58 kg

DRUGS (2)
  1. SUTENT [Suspect]
     Indication: OVARIAN CANCER
     Route: 048
  2. ANTIHYPERTENSIVES [Concomitant]

REACTIONS (9)
  - AGITATION [None]
  - DEPRESSION [None]
  - HAIR COLOUR CHANGES [None]
  - HYPERTENSION [None]
  - HYPERTHYROIDISM [None]
  - MUCOSAL DRYNESS [None]
  - NAUSEA [None]
  - PALMAR-PLANTAR ERYTHRODYSAESTHESIA SYNDROME [None]
  - VOMITING [None]
